FAERS Safety Report 5407165-3 (Version None)
Quarter: 2007Q3

REPORT INFORMATION
  Report Type: 
  Country: None (occurrence: None)
  Receive Date: 20070807
  Receipt Date: 20070727
  Transmission Date: 20080115
  Serious: Yes (Hospitalization)
  Sender: FDA-Public Use
  Company Number: JP-MERCK-0707USA03516

PATIENT
  Age: 89 Year
  Sex: Female
  Weight: 48 kg

DRUGS (2)
  1. PRIMAXIN [Suspect]
     Indication: URINARY TRACT INFECTION
     Route: 030
     Dates: start: 20070606, end: 20070606
  2. FLUMARIN [Concomitant]
     Route: 065

REACTIONS (2)
  - INJECTION SITE ERYTHEMA [None]
  - INJECTION SITE SWELLING [None]
